FAERS Safety Report 16741495 (Version 1)
Quarter: 2019Q3

REPORT INFORMATION
  Report Type: Spontaneous
  Country: NL (occurrence: NL)
  Receive Date: 20190826
  Receipt Date: 20190826
  Transmission Date: 20191005
  Serious: Yes (Death, Other)
  Sender: FDA-Public Use
  Company Number: NL-PFIZER INC-2019358399

PATIENT
  Age: 56 Year
  Sex: Female
  Weight: 62 kg

DRUGS (11)
  1. TEMAZEPAM. [Concomitant]
     Active Substance: TEMAZEPAM
     Dosage: 10 MG, 1X/DAY
  2. EUTHYROX [Concomitant]
     Active Substance: LEVOTHYROXINE SODIUM
     Dosage: 100 UG, 1X/DAY
  3. PARACETAMOL [Concomitant]
     Active Substance: ACETAMINOPHEN
     Dosage: 1000 MG, UNK
  4. THIAMINE. [Concomitant]
     Active Substance: THIAMINE
     Dosage: 100 MG, 1X/DAY FOR 5 DAYS
  5. SPIRIVA [Concomitant]
     Active Substance: TIOTROPIUM BROMIDE MONOHYDRATE
     Dosage: 5 UG, 1X/DAY
  6. MONO CEDOCARD [Concomitant]
     Active Substance: ISOSORBIDE MONONITRATE
     Dosage: 50 MG, 1X/DAY
  7. PANTOZOLE [Concomitant]
     Active Substance: PANTOPRAZOLE SODIUM
     Dosage: 40 MG, 2X/DAY
  8. CYRAMZA [Interacting]
     Active Substance: RAMUCIRUMAB
     Indication: OESOPHAGEAL CANCER METASTATIC
     Dosage: 8 MG/KG, UNK
     Route: 050
     Dates: start: 20190612, end: 20190714
  9. PACLITAXEL. [Suspect]
     Active Substance: PACLITAXEL
     Indication: OESOPHAGEAL CANCER METASTATIC
     Dosage: UNK
     Route: 042
     Dates: start: 20190612, end: 20190714
  10. OXAZEPAM. [Concomitant]
     Active Substance: OXAZEPAM
     Dosage: 10 MG, AS NEEDED, MAXIMUM OF 10MG A DAY
  11. KALIUMCHLORIDE [Concomitant]
     Dosage: 30 ML, 1X/DAY
     Route: 042

REACTIONS (5)
  - Drug interaction [Fatal]
  - Retroperitoneal lymphadenopathy [Fatal]
  - Gastrointestinal perforation [Fatal]
  - Diverticulitis [Fatal]
  - Adrenomegaly [Fatal]

NARRATIVE: CASE EVENT DATE: 20190714
